FAERS Safety Report 21002878 (Version 1)
Quarter: 2022Q2

REPORT INFORMATION
  Report Type: Spontaneous
  Country: AT (occurrence: AT)
  Receive Date: 20220624
  Receipt Date: 20220624
  Transmission Date: 20220721
  Serious: Yes (Other)
  Sender: FDA-Public Use
  Company Number: AT-BAYER-2022A087216

PATIENT
  Age: 91 Year
  Sex: Male

DRUGS (1)
  1. EYLEA [Suspect]
     Active Substance: AFLIBERCEPT
     Indication: Neovascular age-related macular degeneration
     Dosage: VIALS, 1 DF, ONCE, LEFT EYE, LAST EYLEA INJECTION BEFORE AE, RECEIVED 50 EYLEA INJECTIONS IN TOTAL
     Dates: start: 20220425, end: 20220425

REACTIONS (4)
  - Retinal haemorrhage [Not Recovered/Not Resolved]
  - Eye inflammation [Not Recovered/Not Resolved]
  - Vitritis [Not Recovered/Not Resolved]
  - Multiple use of single-use product [Unknown]

NARRATIVE: CASE EVENT DATE: 20220428
